FAERS Safety Report 7397604-3 (Version None)
Quarter: 2011Q2

REPORT INFORMATION
  Report Type: 
  Country: None (occurrence: None)
  Receive Date: 20110406
  Receipt Date: 20110324
  Transmission Date: 20111010
  Serious: Yes (Hospitalization)
  Sender: FDA-Public Use
  Company Number: US-CELGENEUS-163-21880-11033206

PATIENT
  Age: 78 Year
  Sex: Male
  Weight: 75.636 kg

DRUGS (1)
  1. REVLIMID [Suspect]
     Indication: MULTIPLE MYELOMA
     Route: 048

REACTIONS (8)
  - TOXICITY TO VARIOUS AGENTS [None]
  - HYPERTENSION [None]
  - PANCYTOPENIA [None]
  - DEHYDRATION [None]
  - BRONCHITIS [None]
  - RENAL FAILURE ACUTE [None]
  - LARYNGITIS [None]
  - GASTROOESOPHAGEAL REFLUX DISEASE [None]
